FAERS Safety Report 17042565 (Version 1)
Quarter: 2019Q4

REPORT INFORMATION
  Report Type: Spontaneous
  Country: JP (occurrence: JP)
  Receive Date: 20191118
  Receipt Date: 20191118
  Transmission Date: 20200122
  Serious: Yes (Life-Threatening, Other)
  Sender: FDA-Public Use
  Company Number: JP-TEVA-2019-JP-1138409

PATIENT
  Age: 29 Year
  Sex: Female
  Weight: 67 kg

DRUGS (5)
  1. PEGFILGRASTIM [Suspect]
     Active Substance: PEGFILGRASTIM
     Indication: PROPHYLAXIS
     Dosage: SCHEDULED TO BE ADMINISTERED ON DAY 3 OF EACH CYCLE (1-5). INITIALLY DOSE DECREASED TO 1.8MG, OMITTE
     Route: 065
  2. PEGFILGRASTIM [Suspect]
     Active Substance: PEGFILGRASTIM
     Indication: FEBRILE NEUTROPENIA
     Dosage: INITIALLY DOSE DECREASED TO 1.8MG
     Route: 065
  3. CYCLOPHOSPHAMIDE. [Concomitant]
     Active Substance: CYCLOPHOSPHAMIDE
     Indication: INVASIVE DUCTAL BREAST CARCINOMA
     Dosage: FOUR CYCLES
     Route: 065
  4. DOCETAXEL. [Suspect]
     Active Substance: DOCETAXEL
     Indication: INVASIVE DUCTAL BREAST CARCINOMA
     Dosage: SCHEDULED TO BE ADMINISTERED FOR FOUR CYCLES OF DD DOCETAXEL 75 MG/M 2 EVERY 2 WEEKS
     Route: 065
  5. EPIRUBICIN [Concomitant]
     Active Substance: EPIRUBICIN
     Indication: INVASIVE DUCTAL BREAST CARCINOMA
     Dosage: FOUR CYCLES
     Route: 065

REACTIONS (5)
  - Leukocytosis [Recovered/Resolved]
  - Enteritis [Unknown]
  - Viral infection [Unknown]
  - Fatigue [Recovering/Resolving]
  - Febrile neutropenia [Recovered/Resolved]
